FAERS Safety Report 7600491-9 (Version None)
Quarter: 2011Q3

REPORT INFORMATION
  Report Type: 
  Country: None (occurrence: None)
  Receive Date: 20110711
  Receipt Date: 20110701
  Transmission Date: 20111222
  Serious: Yes (Other)
  Sender: FDA-Public Use
  Company Number: BR-ASTRAZENECA-2011SE40103

PATIENT
  Age: 76 Year
  Sex: Male
  Weight: 82 kg

DRUGS (7)
  1. CRESTOR [Suspect]
     Route: 048
  2. FINASTERIDE [Concomitant]
     Indication: BENIGN PROSTATIC HYPERPLASIA
     Route: 048
  3. ASPIRIN [Concomitant]
     Route: 048
     Dates: start: 20060101
  4. ATACAND [Suspect]
     Route: 048
     Dates: end: 20110501
  5. NEXIUM [Suspect]
     Route: 048
     Dates: start: 20100101
  6. METOPROLOL SUCCINATE [Suspect]
     Route: 048
  7. ALDACTONE [Concomitant]
     Route: 048
     Dates: start: 20060101

REACTIONS (2)
  - AORTIC DILATATION [None]
  - ARTERIAL CATHETERISATION [None]
